FAERS Safety Report 16158223 (Version 4)
Quarter: 2021Q3

REPORT INFORMATION
  Report Type: Spontaneous
  Country: IN (occurrence: IN)
  Receive Date: 20190404
  Receipt Date: 20210819
  Transmission Date: 20211014
  Serious: Yes (Other)
  Sender: FDA-Public Use
  Company Number: IN-PFIZER INC-2018513661

PATIENT
  Age: 45 Year
  Sex: Female

DRUGS (1)
  1. PALBACE [Suspect]
     Active Substance: PALBOCICLIB
     Indication: BREAST CANCER METASTATIC
     Dosage: 125 MG AND 100 MG, ALTERNATE, 1X/DAY
     Route: 048
     Dates: start: 20181212

REACTIONS (11)
  - Hepatic cancer [Unknown]
  - Vomiting [Unknown]
  - Fatigue [Unknown]
  - Hypersensitivity [Unknown]
  - Neoplasm progression [Unknown]
  - Second primary malignancy [Unknown]
  - Platelet count decreased [Unknown]
  - Arthralgia [Unknown]
  - Pruritus [Unknown]
  - Pain in extremity [Unknown]
  - Rhinorrhoea [Unknown]
